FAERS Safety Report 11655700 (Version 1)
Quarter: 2015Q4

REPORT INFORMATION
  Report Type: Spontaneous
  Country: US (occurrence: US)
  Receive Date: 20151023
  Receipt Date: 20151023
  Transmission Date: 20160304
  Serious: Yes (Hospitalization, Other)
  Sender: FDA-Public Use
  Company Number: US-ELI_LILLY_AND_COMPANY-US201510003640

PATIENT
  Sex: Male

DRUGS (6)
  1. VICTOZA [Interacting]
     Active Substance: LIRAGLUTIDE
     Indication: PRODUCT USED FOR UNKNOWN INDICATION
     Dosage: 0.6 MG, QD
     Route: 065
     Dates: start: 201507
  2. LANTUS [Interacting]
     Active Substance: INSULIN GLARGINE
     Indication: PRODUCT USED FOR UNKNOWN INDICATION
     Dosage: 41 U, EACH EVENING
     Route: 065
  3. VICTOZA [Interacting]
     Active Substance: LIRAGLUTIDE
     Dosage: 1.8 MG, QD
     Route: 065
  4. HUMALOG [Suspect]
     Active Substance: INSULIN LISPRO
     Indication: PRODUCT USED FOR UNKNOWN INDICATION
     Route: 065
  5. LANTUS [Interacting]
     Active Substance: INSULIN GLARGINE
     Dosage: 20 U, EACH EVENING
     Route: 065
  6. VICTOZA [Interacting]
     Active Substance: LIRAGLUTIDE
     Dosage: 1.2 MG, QD
     Route: 065

REACTIONS (6)
  - Dysphagia [Unknown]
  - Transient ischaemic attack [Recovering/Resolving]
  - Blood glucose decreased [Recovered/Resolved]
  - Heart rate increased [Unknown]
  - Drug interaction [Unknown]
  - Headache [Unknown]

NARRATIVE: CASE EVENT DATE: 20150925
